FAERS Safety Report 25008384 (Version 1)
Quarter: 2025Q1

REPORT INFORMATION
  Report Type: Spontaneous
  Country: DE (occurrence: DE)
  Receive Date: 20250225
  Receipt Date: 20250225
  Transmission Date: 20250409
  Serious: Yes (Other)
  Sender: TEVA
  Company Number: None

PATIENT
  Age: 27 Year
  Sex: Female
  Weight: 78 kg

DRUGS (1)
  1. CLINDAMYCIN [Suspect]
     Active Substance: CLINDAMYCIN
     Indication: Sinusitis
     Dosage: 2X 600 MG DAILY EXPECTED UNTIL 20250209
     Route: 048
     Dates: start: 20250204

REACTIONS (7)
  - Cholestasis [Recovering/Resolving]
  - Decreased appetite [Recovering/Resolving]
  - Oesophageal irritation [Recovering/Resolving]
  - Dizziness [Recovering/Resolving]
  - Asthenia [Recovering/Resolving]
  - Dysgeusia [Recovering/Resolving]
  - Hypotension [Recovering/Resolving]
